FAERS Safety Report 6752885-1 (Version None)
Quarter: 2010Q2

REPORT INFORMATION
  Report Type: 
  Country: None (occurrence: None)
  Receive Date: 20100602
  Receipt Date: 20100602
  Transmission Date: 20101027
  Serious: Yes (Other)
  Sender: FDA-Public Use
  Company Number: None

PATIENT
  Age: 25 Year
  Sex: Female
  Weight: 68.0396 kg

DRUGS (2)
  1. YAZ [Suspect]
     Indication: CONTRACEPTION
     Dosage: 1/DAY PO
     Route: 048
     Dates: start: 20100401, end: 20100530
  2. YAZ [Suspect]
     Indication: MOOD SWINGS
     Dosage: 1/DAY PO
     Route: 048
     Dates: start: 20100401, end: 20100530

REACTIONS (6)
  - ABNORMAL DREAMS [None]
  - ACTIVITIES OF DAILY LIVING IMPAIRED [None]
  - DEPRESSION [None]
  - EMOTIONAL DISORDER [None]
  - INSOMNIA [None]
  - MOOD ALTERED [None]
